FAERS Safety Report 4764980-7 (Version None)
Quarter: 2005Q3

REPORT INFORMATION
  Report Type: 
  Country: None (occurrence: None)
  Receive Date: 20050909
  Receipt Date: 20050902
  Transmission Date: 20060218
  Serious: Yes (Hospitalization)
  Sender: FDA-Public Use
  Company Number: US-ROCHE-416581

PATIENT
  Sex: Male

DRUGS (1)
  1. ROCEPHIN [Suspect]
     Indication: MENINGITIS
     Dosage: PATIENT RECEIVED A TOTAL OF NINE DOSES.
     Route: 042
     Dates: start: 20050827, end: 20050829

REACTIONS (3)
  - CULTURE POSITIVE [None]
  - ENTEROBACTER INFECTION [None]
  - RASH PUSTULAR [None]
